FAERS Safety Report 6053947-7 (Version None)
Quarter: 2009Q1

REPORT INFORMATION
  Report Type: 
  Country: None (occurrence: None)
  Receive Date: 20090127
  Receipt Date: 20090121
  Transmission Date: 20090719
  Serious: Yes (Life-Threatening, Disabling)
  Sender: FDA-Public Use
  Company Number: FR-BAYER-200832929GPV

PATIENT
  Age: 66 Year
  Sex: Female

DRUGS (5)
  1. NEXAVAR [Suspect]
     Indication: HEPATIC NEOPLASM MALIGNANT
     Route: 065
     Dates: start: 20080722
  2. ANTIVITAMIN K [Suspect]
     Indication: THROMBOSIS
     Route: 048
     Dates: end: 20081101
  3. PREVISCAN [Concomitant]
     Indication: THROMBOSIS MESENTERIC VESSEL
     Route: 065
  4. NOVOLOG MIX 70/30 [Concomitant]
     Indication: DIABETES MELLITUS
     Route: 065
  5. TRAMADOL HCL [Concomitant]
     Indication: PAIN
     Route: 065

REACTIONS (1)
  - HAEMORRHAGIC STROKE [None]
